FAERS Safety Report 7743782-3 (Version None)
Quarter: 2011Q3

REPORT INFORMATION
  Report Type: 
  Country: None (occurrence: None)
  Receive Date: 20110912
  Receipt Date: 20110902
  Transmission Date: 20111222
  Serious: Yes (Hospitalization)
  Sender: FDA-Public Use
  Company Number: US-GLAXOSMITHKLINE-A0810465A

PATIENT
  Age: 70 Year
  Sex: Male
  Weight: 106.8 kg

DRUGS (8)
  1. ACIPHEX [Concomitant]
  2. AVANDIA [Suspect]
     Indication: TYPE 2 DIABETES MELLITUS
     Dosage: 8MG TWICE PER DAY
     Route: 048
     Dates: start: 20040101, end: 20071107
  3. ALBUTEROL SULFATE AUTOHALER [Concomitant]
  4. GLYBURIDE [Concomitant]
  5. PRILOSEC [Concomitant]
  6. TRAZODONE HCL [Concomitant]
  7. ZOLOFT [Concomitant]
  8. XANAX [Concomitant]

REACTIONS (5)
  - BLOOD TRIGLYCERIDES INCREASED [None]
  - ATRIOVENTRICULAR BLOCK [None]
  - MYOCARDIAL INFARCTION [None]
  - HYPERCHOLESTEROLAEMIA [None]
  - TRANSIENT ISCHAEMIC ATTACK [None]
